FAERS Safety Report 5898943-5 (Version None)
Quarter: 2008Q3

REPORT INFORMATION
  Report Type: 
  Country: None (occurrence: None)
  Receive Date: 20080925
  Receipt Date: 20080923
  Transmission Date: 20090109
  Serious: Yes (Other)
  Sender: FDA-Public Use
  Company Number: CA-WYE-H06098308

PATIENT
  Age: 2 Year
  Sex: Female

DRUGS (1)
  1. ADVIL EXTRA STRENGTH [Suspect]
     Dosage: UNKNOWN X 1
     Route: 048
     Dates: start: 20080919, end: 20080919

REACTIONS (2)
  - ACCIDENTAL DRUG INTAKE BY CHILD [None]
  - ACCIDENTAL OVERDOSE [None]
